FAERS Safety Report 21553247 (Version 1)
Quarter: 2022Q4

REPORT INFORMATION
  Report Type: Spontaneous
  Country: US (occurrence: US)
  Receive Date: 20221104
  Receipt Date: 20221104
  Transmission Date: 20230112
  Serious: No
  Sender: FDA-Public Use
  Company Number: US-REDHILL-2022RDH00101

PATIENT
  Sex: Male

DRUGS (2)
  1. MOVANTIK [Suspect]
     Active Substance: NALOXEGOL OXALATE
     Indication: Constipation
     Dosage: 25 MG, ONCE AT NIGHT TIME AS NEEDED IF NO BOWEL MOVEMENT
     Route: 048
     Dates: start: 202205, end: 202205
  2. LINZESS [Concomitant]
     Active Substance: LINACLOTIDE

REACTIONS (2)
  - Gastrointestinal pain [Unknown]
  - Off label use [Recovered/Resolved]

NARRATIVE: CASE EVENT DATE: 20220101
